FAERS Safety Report 18543136 (Version 1)
Quarter: 2020Q4

REPORT INFORMATION
  Report Type: Spontaneous
  Country: FR (occurrence: FR)
  Receive Date: 20201125
  Receipt Date: 20201125
  Transmission Date: 20210114
  Serious: Yes (Other)
  Sender: FDA-Public Use
  Company Number: FR-AUROBINDO-AUR-APL-2020-057663

PATIENT
  Age: 53 Year
  Sex: Male
  Weight: 65 kg

DRUGS (10)
  1. DIAZEPAM. [Suspect]
     Active Substance: DIAZEPAM
     Indication: MENTAL DISORDER
     Dosage: 40 MILLIGRAM, ONCE A DAY
     Route: 048
     Dates: start: 20190423
  2. MIANSERIN [Suspect]
     Active Substance: MIANSERIN
     Indication: DEPRESSION
     Dosage: 60 MILLIGRAM, ONCE A DAY
     Route: 048
     Dates: start: 20190514, end: 20200924
  3. LOXAPAC [Suspect]
     Active Substance: LOXAPINE
     Indication: MENTAL DISORDER
     Dosage: 75 MILLIGRAM, ONCE A DAY
     Route: 048
  4. ZYPREXA [Suspect]
     Active Substance: OLANZAPINE
     Indication: MENTAL DISORDER
     Dosage: 20 MILLIGRAM, ONCE A DAY
     Route: 048
     Dates: start: 20150317
  5. ZOPICLONE [Concomitant]
     Active Substance: ZOPICLONE
     Indication: SLEEP DISORDER
     Dosage: 7.5 MILLIGRAM, ONCE A DAY
     Route: 048
     Dates: start: 20160712
  6. AMLODIPINE [Suspect]
     Active Substance: AMLODIPINE BESYLATE
     Indication: HYPERTENSION
     Dosage: 10 MILLIGRAM, ONCE A DAY
     Route: 048
     Dates: start: 20190323
  7. PERINDOPRIL [Suspect]
     Active Substance: PERINDOPRIL
     Indication: HYPERTENSION
     Dosage: 8 MILLIGRAM, ONCE A DAY
     Route: 048
     Dates: start: 20190325
  8. VENLAFAXINE [Suspect]
     Active Substance: VENLAFAXINE HYDROCHLORIDE
     Indication: ANXIETY
     Dosage: 37.5 MILLIGRAM, ONCE A DAY
     Route: 048
     Dates: start: 20150317, end: 20200922
  9. PHENERGAN [Suspect]
     Active Substance: PROMETHAZINE HYDROCHLORIDE
     Indication: MENTAL DISORDER
     Dosage: 500 MILLIGRAM, ONCE A DAY
     Route: 042
     Dates: start: 20200924, end: 20201002
  10. LEPTICUR [Suspect]
     Active Substance: TROPATEPINE HYDROCHLORIDE
     Indication: MENTAL DISORDER
     Dosage: 10 MILLIGRAM, ONCE A DAY
     Route: 048
     Dates: start: 20190423

REACTIONS (2)
  - Constipation [Recovered/Resolved]
  - Vomiting [Recovered/Resolved]

NARRATIVE: CASE EVENT DATE: 202009
